FAERS Safety Report 7698912 (Version 9)
Quarter: 2012Q4

REPORT INFORMATION
  Report Type: 
  Country: DK (occurrence: DK)
  Receive Date: 20101208
  Receipt Date: 20121116
  Transmission Date: 20130627
  Serious: Yes (Life-Threatening, Hospitalization, Disabling, Other)
  Sender: FDA-Public Use
  Company Number: DK-JNJFOC-20101202775

PATIENT
  Age: 31 None
  Sex: Female

DRUGS (11)
  1. IMODIUM [Suspect]
     Route: 048
  2. IMODIUM [Suspect]
     Indication: DIARRHOEA
     Route: 048
     Dates: start: 20101006, end: 20101006
  3. TEGRETOL [Suspect]
     Indication: EPILEPSY
     Dosage: since 15 years.
     Route: 048
     Dates: start: 19950101, end: 20101009
  4. CIPROFLOXACIN [Suspect]
     Indication: DIARRHOEA
     Route: 048
     Dates: start: 20121006
  5. CIPROFLOXACIN [Suspect]
     Indication: DIARRHOEA
     Route: 048
     Dates: start: 20101006, end: 20101006
  6. PRIMPERAN [Suspect]
     Indication: DIARRHOEA
     Route: 048
     Dates: start: 20121006
  7. PRIMPERAN [Suspect]
     Indication: DIARRHOEA
     Route: 048
     Dates: start: 20101006, end: 20101006
  8. PRIMPERAN [Suspect]
     Indication: NAUSEA
     Route: 048
     Dates: start: 20121006
  9. PRIMPERAN [Suspect]
     Indication: NAUSEA
     Route: 048
     Dates: start: 20101006, end: 20101006
  10. VALPROIC ACID [Suspect]
     Indication: EPILEPSY
     Dosage: since 15 years
     Route: 065
     Dates: start: 19950101, end: 19950101
  11. DEPAKINE [Suspect]
     Indication: EPILEPSY
     Route: 065

REACTIONS (11)
  - Oral candidiasis [Unknown]
  - Corneal perforation [Recovered/Resolved with Sequelae]
  - Pneumonia [Unknown]
  - Toxic epidermal necrolysis [Recovered/Resolved with Sequelae]
  - Dry eye [Not Recovered/Not Resolved]
  - Visual impairment [Not Recovered/Not Resolved]
  - Oropharyngeal pain [Unknown]
  - Pyrexia [Unknown]
  - Activities of daily living impaired [Not Recovered/Not Resolved]
  - Product quality issue [Unknown]
  - Drug intolerance [Unknown]
